FAERS Safety Report 4684889-7 (Version None)
Quarter: 2005Q2

REPORT INFORMATION
  Report Type: 
  Country: None (occurrence: None)
  Receive Date: 20050525
  Receipt Date: 20050405
  Transmission Date: 20051028
  Serious: Yes (Hospitalization)
  Sender: FDA-Public Use
  Company Number: 213010

PATIENT
  Age: 67 Year
  Sex: Female
  Weight: 106.6 kg

DRUGS (8)
  1. RAPTIVA [Suspect]
     Indication: PSORIASIS
     Dosage: 1.25 MG, 1/WEEK, SUBCUTANEOUS
     Route: 058
     Dates: start: 20040908, end: 20050308
  2. SORIATANE [Concomitant]
  3. GEMFIBROZIL [Concomitant]
  4. NADOLOL [Concomitant]
  5. ORUDIS [Concomitant]
  6. ALLEGRA [Concomitant]
  7. PREDNISONE [Concomitant]
  8. ACITRETIN [Concomitant]

REACTIONS (2)
  - HAEMATOCHEZIA [None]
  - THROMBOCYTOPENIA [None]
